FAERS Safety Report 4296018-2 (Version None)
Quarter: 2004Q1

REPORT INFORMATION
  Report Type: 
  Country: None (occurrence: None)
  Receive Date: 20040212
  Receipt Date: 20040127
  Transmission Date: 20041129
  Serious: Yes (Other)
  Sender: FDA-Public Use
  Company Number: B0321754A

PATIENT
  Sex: Male

DRUGS (3)
  1. ALKERAN [Suspect]
     Indication: MULTIPLE MYELOMA
     Dosage: ORAL
     Route: 048
  2. PREDNISONE [Suspect]
     Indication: MULTIPLE MYELOMA
     Dosage: ORAL
     Route: 048
  3. DOXORUBICIN HCL [Suspect]
     Indication: MULTIPLE MYELOMA

REACTIONS (1)
  - CARDIAC FAILURE ACUTE [None]
